FAERS Safety Report 9953167 (Version 2)
Quarter: 2014Q1

REPORT INFORMATION
  Report Type: Spontaneous
  Country: PR (occurrence: PR)
  Receive Date: 20140304
  Receipt Date: 20140304
  Transmission Date: 20141002
  Serious: No
  Sender: FDA-Public Use
  Company Number: PR-ABBVIE-12P-131-0997867-00

PATIENT
  Sex: Female
  Weight: 113.5 kg

DRUGS (3)
  1. HUMIRA [Suspect]
     Indication: CROHN^S DISEASE
     Route: 058
     Dates: start: 201202
  2. LOTREL [Concomitant]
     Indication: HYPERTENSION
     Route: 048
  3. AZOR [Concomitant]
     Indication: HYPERTENSION
     Dosage: 5/20 1 TAB DAILY
     Route: 048

REACTIONS (2)
  - Headache [Recovered/Resolved with Sequelae]
  - Hypertension [Recovered/Resolved with Sequelae]
